FAERS Safety Report 11873432 (Version 2)
Quarter: 2015Q4

REPORT INFORMATION
  Report Type: Spontaneous
  Country: US (occurrence: US)
  Receive Date: 20151228
  Receipt Date: 20151231
  Transmission Date: 20160305
  Serious: Yes (Death, Life-Threatening, Hospitalization)
  Sender: FDA-Public Use
  Company Number: US-UNITED THERAPEUTICS-UNT-2015-015040

PATIENT
  Age: 26 Year
  Sex: Male
  Weight: 72.97 kg

DRUGS (5)
  1. REMODULIN [Suspect]
     Active Substance: TREPROSTINIL
     Dosage: 0.03 ?G/KG, CONTINUING
     Route: 041
  2. REMODULIN [Suspect]
     Active Substance: TREPROSTINIL
     Indication: PULMONARY HYPERTENSION
     Dosage: 0.073 ?G/KG, CONTINUING
     Route: 041
     Dates: start: 20151007
  3. COUMADIN [Concomitant]
     Active Substance: WARFARIN SODIUM
     Indication: PRODUCT USED FOR UNKNOWN INDICATION
  4. REMODULIN [Suspect]
     Active Substance: TREPROSTINIL
     Dosage: 0.024 ?G/KG, CONTINUING
     Route: 041
  5. SILDENAFIL. [Concomitant]
     Active Substance: SILDENAFIL
     Indication: PRODUCT USED FOR UNKNOWN INDICATION

REACTIONS (11)
  - Hypotension [Fatal]
  - Adverse event [Fatal]
  - Splenic infarction [Fatal]
  - Renal infarct [Fatal]
  - Pulmonary arterial hypertension [Fatal]
  - Haemoptysis [Unknown]
  - Sepsis [Fatal]
  - Pulmonary haemorrhage [Unknown]
  - Hypoxia [Unknown]
  - Pulseless electrical activity [Fatal]
  - Body temperature decreased [Unknown]

NARRATIVE: CASE EVENT DATE: 20151126
